FAERS Safety Report 9357726 (Version 1)
Quarter: 2013Q2

REPORT INFORMATION
  Report Type: Spontaneous
  Country: US (occurrence: US)
  Receive Date: 20130620
  Receipt Date: 20130620
  Transmission Date: 20140414
  Serious: Yes (Hospitalization, Other)
  Sender: FDA-Public Use
  Company Number: US-PFIZER INC-2013181131

PATIENT
  Age: 72 Year
  Sex: Female
  Weight: 58.96 kg

DRUGS (1)
  1. TOVIAZ [Suspect]
     Indication: HYPERTONIC BLADDER
     Dosage: 4 MG, 1X/DAY
     Route: 048
     Dates: start: 20130515, end: 20130518

REACTIONS (8)
  - Swollen tongue [Unknown]
  - Activities of daily living impaired [Unknown]
  - Malaise [Unknown]
  - Pain [Unknown]
  - Dizziness [Unknown]
  - Nausea [Unknown]
  - Infection [Unknown]
  - Drug ineffective [Unknown]
